FAERS Safety Report 7998991-5 (Version None)
Quarter: 2011Q4

REPORT INFORMATION
  Report Type: 
  Country: None (occurrence: None)
  Receive Date: 20111221
  Receipt Date: 20111208
  Transmission Date: 20120403
  Serious: Yes (Death, Other)
  Sender: FDA-Public Use
  Company Number: DE-CELGENEUS-062-21880-11121212

PATIENT
  Age: 73 Year
  Sex: Male

DRUGS (2)
  1. REVLIMID [Suspect]
     Route: 048
  2. VIDAZA [Suspect]
     Route: 065

REACTIONS (4)
  - SEPSIS [None]
  - CHLOROMA [None]
  - MYELODYSPLASTIC SYNDROME TRANSFORMATION [None]
  - ACUTE MYELOID LEUKAEMIA [None]
